FAERS Safety Report 13615334 (Version 1)
Quarter: 2017Q2

REPORT INFORMATION
  Report Type: Report from Study
  Country: CA (occurrence: CA)
  Receive Date: 20170606
  Receipt Date: 20170606
  Transmission Date: 20170830
  Serious: Yes (Other)
  Sender: FDA-Public Use
  Company Number: CA-GLAXOSMITHKLINE-CA2017GSK084367

PATIENT
  Sex: Female

DRUGS (2)
  1. FLUTICASONE PROPIONATE+SALMETEROL XINAFOATE [Suspect]
     Active Substance: FLUTICASONE PROPIONATE\SALMETEROL XINAFOATE
     Indication: PRODUCT USED FOR UNKNOWN INDICATION
     Dosage: UNK
  2. VENTOLIN [Suspect]
     Active Substance: ALBUTEROL SULFATE
     Indication: PRODUCT USED FOR UNKNOWN INDICATION
     Dosage: UNK

REACTIONS (14)
  - Complex regional pain syndrome [Unknown]
  - Bronchitis chronic [Unknown]
  - Pulmonary hypertension [Unknown]
  - Fibromyalgia [Unknown]
  - Bladder prolapse [Unknown]
  - Epstein-Barr virus infection [Unknown]
  - Bronchiectasis [Unknown]
  - Major depression [Unknown]
  - Pain [Unknown]
  - Hypertension [Unknown]
  - Chronic fatigue syndrome [Unknown]
  - Neoplasm [Unknown]
  - Urinary incontinence [Unknown]
  - Hysterectomy [Unknown]

NARRATIVE: CASE EVENT DATE: 2016
